FAERS Safety Report 13227138 (Version 1)
Quarter: 2017Q1

REPORT INFORMATION
  Report Type: Spontaneous
  Country: US (occurrence: US)
  Receive Date: 20170213
  Receipt Date: 20170213
  Transmission Date: 20170428
  Serious: Yes (Other)
  Sender: FDA-Public Use
  Company Number: US-BRISTOL-MYERS SQUIBB COMPANY-BMS-2017-010574

PATIENT
  Sex: Female

DRUGS (2)
  1. ELIQUIS [Suspect]
     Active Substance: APIXABAN
     Indication: PULMONARY EMBOLISM
     Route: 065
  2. ELIQUIS [Suspect]
     Active Substance: APIXABAN
     Indication: DEEP VEIN THROMBOSIS
     Route: 065

REACTIONS (2)
  - Vaginal haemorrhage [Unknown]
  - Off label use [Unknown]
